FAERS Safety Report 8199192-0 (Version None)
Quarter: 2012Q1

REPORT INFORMATION
  Report Type: 
  Country: None (occurrence: None)
  Receive Date: 20120309
  Receipt Date: 20120228
  Transmission Date: 20120608
  Serious: Yes (Hospitalization)
  Sender: FDA-Public Use
  Company Number: BE-ABBOTT-12P-013-0909476-01

PATIENT
  Sex: Female
  Weight: 45 kg

DRUGS (5)
  1. DAKTOZIN [Concomitant]
     Indication: PROPHYLAXIS
     Dates: start: 20091210
  2. METRONIDAZOLE [Concomitant]
     Indication: ANTIINFLAMMATORY THERAPY
     Dates: start: 20091210
  3. CETRIMIDE [Concomitant]
     Indication: ANAL SKIN TAGS
     Dates: start: 20110107
  4. HUMIRA [Suspect]
     Indication: CROHN'S DISEASE
     Route: 058
     Dates: start: 20080327, end: 20111203
  5. BECLOMETHASONE DIPROPIONATE [Concomitant]
     Indication: ANTIINFLAMMATORY THERAPY
     Dates: start: 20091210

REACTIONS (1)
  - CROHN'S DISEASE [None]
